FAERS Safety Report 6384525-8 (Version None)
Quarter: 2009Q4

REPORT INFORMATION
  Report Type: 
  Country: None (occurrence: None)
  Receive Date: 20091001
  Receipt Date: 20090923
  Transmission Date: 20100525
  Serious: Yes (Other)
  Sender: FDA-Public Use
  Company Number: TW-BAXTER-2009BH011799

PATIENT
  Age: 52 Year
  Sex: Female
  Weight: 54 kg

DRUGS (19)
  1. EXTRANEAL [Suspect]
     Indication: RENAL FAILURE CHRONIC
     Route: 033
     Dates: start: 20090710, end: 20090716
  2. EXTRANEAL [Suspect]
     Route: 033
     Dates: start: 20090722, end: 20090724
  3. MEXILETINE HYDROCHLORIDE [Concomitant]
     Indication: HYPERTENSION
     Route: 065
  4. ADALAT [Concomitant]
     Indication: HYPERTENSION
     Route: 065
     Dates: start: 20090630, end: 20090802
  5. CONCOR [Concomitant]
     Indication: DRUG USE FOR UNKNOWN INDICATION
     Route: 065
  6. LASIX [Concomitant]
     Indication: DRUG USE FOR UNKNOWN INDICATION
     Route: 065
     Dates: start: 20090717
  7. SENNOSIDE [Concomitant]
     Indication: CONSTIPATION
     Route: 065
     Dates: start: 20090707, end: 20090711
  8. SLOW-K [Concomitant]
     Indication: DRUG USE FOR UNKNOWN INDICATION
     Route: 065
     Dates: start: 20090713, end: 20090714
  9. ZOLOFT [Concomitant]
     Indication: DRUG USE FOR UNKNOWN INDICATION
     Route: 065
     Dates: start: 20090623
  10. CALCIUM CARBONATE [Concomitant]
     Indication: DRUG USE FOR UNKNOWN INDICATION
     Route: 065
  11. MINOXIDIL [Concomitant]
     Indication: HYPERTENSION
     Route: 065
     Dates: start: 20090708, end: 20090716
  12. MINOXIDIL [Concomitant]
     Route: 065
     Dates: start: 20090708, end: 20090716
  13. SENNOSIDE [Concomitant]
     Route: 065
     Dates: start: 20090713, end: 20090717
  14. SENNOSIDE [Concomitant]
     Route: 065
     Dates: start: 20090717
  15. ARANESP [Concomitant]
     Indication: DRUG USE FOR UNKNOWN INDICATION
     Route: 065
     Dates: start: 20090619
  16. ULTRACET [Concomitant]
     Indication: DRUG USE FOR UNKNOWN INDICATION
     Route: 065
     Dates: start: 20090715
  17. SOLAXIN [Concomitant]
     Indication: DRUG USE FOR UNKNOWN INDICATION
     Route: 065
     Dates: start: 20090716, end: 20090724
  18. GASTER [Concomitant]
     Indication: DRUG USE FOR UNKNOWN INDICATION
     Route: 065
     Dates: start: 20090720, end: 20090725
  19. MUCOSOLVAN [Concomitant]
     Indication: DRUG USE FOR UNKNOWN INDICATION
     Route: 065
     Dates: start: 20090711, end: 20090728

REACTIONS (1)
  - LEUKOPENIA [None]
